FAERS Safety Report 10209775 (Version 1)
Quarter: 2014Q2

REPORT INFORMATION
  Report Type: Spontaneous
  Country: DE (occurrence: DE)
  Receive Date: 20140602
  Receipt Date: 20140602
  Transmission Date: 20141212
  Serious: Yes (Hospitalization)
  Sender: FDA-Public Use
  Company Number: DE-AMGEN-DEUSP2014039480

PATIENT
  Age: 89 Year
  Sex: Female

DRUGS (1)
  1. XGEVA [Suspect]
     Indication: BREAST CANCER METASTATIC
     Dosage: 120 MG, ONE TIME ADMINISTRATION
     Route: 058
     Dates: start: 201404, end: 201404

REACTIONS (1)
  - Hypocalcaemia [Unknown]
